FAERS Safety Report 14943606 (Version 1)
Quarter: 2018Q2

REPORT INFORMATION
  Report Type: Spontaneous
  Country: JP (occurrence: JP)
  Receive Date: 20180528
  Receipt Date: 20180528
  Transmission Date: 20180711
  Serious: Yes (Death, Hospitalization)
  Sender: FDA-Public Use
  Company Number: PHBS1999JP03718

PATIENT
  Age: 19 Month
  Sex: Male

DRUGS (12)
  1. SANDIMMUN (CICLOSPORIN) INFUSION [Suspect]
     Active Substance: CYCLOSPORINE
     Dosage: 27 MG, QD
     Route: 065
     Dates: start: 19980415, end: 19980415
  2. SANDIMMUN (CICLOSPORIN) INFUSION [Suspect]
     Active Substance: CYCLOSPORINE
     Dosage: 30 MG, QD
     Route: 065
     Dates: start: 19980416, end: 19980419
  3. SANDIMMUN (CICLOSPORIN) INFUSION [Suspect]
     Active Substance: CYCLOSPORINE
     Dosage: 24 MG, QD
     Route: 065
     Dates: start: 19980407, end: 19980414
  4. SANDIMMUN (CICLOSPORIN) INFUSION [Suspect]
     Active Substance: CYCLOSPORINE
     Dosage: 24 MG, QD
     Route: 065
     Dates: start: 19980423, end: 19980423
  5. SANDIMMUN (CICLOSPORIN) INFUSION [Suspect]
     Active Substance: CYCLOSPORINE
     Dosage: 57 MG, QD
     Route: 065
     Dates: start: 19980420, end: 19980421
  6. SANDIMMUN (CICLOSPORIN) INFUSION [Suspect]
     Active Substance: CYCLOSPORINE
     Dosage: UNK
     Route: 065
     Dates: start: 19980405, end: 19980405
  7. SANDIMMUN (CICLOSPORIN) INFUSION [Suspect]
     Active Substance: CYCLOSPORINE
     Dosage: 36 MG, QD
     Route: 065
     Dates: start: 19980406, end: 19980406
  8. SANDIMMUN (CICLOSPORIN) INFUSION [Suspect]
     Active Substance: CYCLOSPORINE
     Dosage: 27 MG, QD
     Route: 065
     Dates: start: 19980422, end: 19980422
  9. SANDIMMUN (CICLOSPORIN) INFUSION [Suspect]
     Active Substance: CYCLOSPORINE
     Dosage: 12 MG, QD
     Route: 065
     Dates: start: 19980424, end: 19980425
  10. SANDIMMUN (CICLOSPORIN) INFUSION [Suspect]
     Active Substance: CYCLOSPORINE
     Dosage: UNK
     Route: 065
     Dates: start: 19980428, end: 19980505
  11. SANDIMMUN (CICLOSPORIN) INFUSION [Suspect]
     Active Substance: CYCLOSPORINE
     Indication: STEM CELL TRANSPLANT
     Dosage: UNK
     Route: 048
     Dates: start: 1998
  12. SANDIMMUN (CICLOSPORIN) INFUSION [Suspect]
     Active Substance: CYCLOSPORINE
     Dosage: UNK
     Route: 065
     Dates: start: 19980426, end: 19980427

REACTIONS (7)
  - Respiratory failure [Fatal]
  - Pneumonitis [Fatal]
  - Human herpesvirus 6 infection [Fatal]
  - Interstitial lung disease [Fatal]
  - Graft versus host disease [Unknown]
  - Diarrhoea [Unknown]
  - Thrombotic microangiopathy [Not Recovered/Not Resolved]
